FAERS Safety Report 5100110-X (Version None)
Quarter: 2006Q3

REPORT INFORMATION
  Report Type: 
  Country: None (occurrence: None)
  Receive Date: 20060731
  Receipt Date: 20060519
  Transmission Date: 20061208
  Serious: No
  Sender: FDA-Public Use
  Company Number: 2006PV014145

PATIENT
  Age: 66 Year
  Sex: Female
  Weight: 83.0083 kg

DRUGS (1)
  1. BYETTA [Suspect]
     Indication: DIABETES MELLITUS NON-INSULIN-DEPENDENT
     Dosage: 5 MCG;BID;SC
     Route: 058
     Dates: start: 20060101

REACTIONS (6)
  - ALOPECIA [None]
  - BLOOD GLUCOSE DECREASED [None]
  - CONSTIPATION [None]
  - DECREASED APPETITE [None]
  - FEELING COLD [None]
  - NAUSEA [None]
